FAERS Safety Report 5806752-8 (Version None)
Quarter: 2008Q3

REPORT INFORMATION
  Report Type: 
  Country: None (occurrence: None)
  Receive Date: 20080709
  Receipt Date: 20080709
  Transmission Date: 20090109
  Serious: Yes (Other)
  Sender: FDA-Public Use
  Company Number: None

PATIENT
  Sex: Male
  Weight: 90.7194 kg

DRUGS (1)
  1. PREVALITE [Suspect]
     Indication: DIARRHOEA
     Dosage: MIX ONE-HALF TO ONE SCOOPFUL AND DRINK IN THE EVENING
     Dates: start: 20080501

REACTIONS (1)
  - OROPHARYNGEAL PAIN [None]
